FAERS Safety Report 9906335 (Version 2)
Quarter: 2014Q2

REPORT INFORMATION
  Report Type: Report from Study
  Country: BR (occurrence: BR)
  Receive Date: 20140218
  Receipt Date: 20140429
  Transmission Date: 20141212
  Serious: Yes (Hospitalization, Other)
  Sender: FDA-Public Use
  Company Number: BR-ABBVIE-14P-020-1200502-00

PATIENT
  Age: 68 Year
  Sex: Female
  Weight: 67 kg

DRUGS (6)
  1. HUMIRA [Suspect]
     Indication: RHEUMATOID ARTHRITIS
     Route: 058
     Dates: start: 2009, end: 2012
  2. CORTISONE [Concomitant]
     Indication: PRODUCT USED FOR UNKNOWN INDICATION
     Route: 048
  3. DIOVAN TRIPLO [Concomitant]
     Indication: BLOOD PRESSURE ABNORMAL
     Route: 048
     Dates: start: 2006
  4. VENLIFT [Concomitant]
     Indication: ANTIDEPRESSANT THERAPY
     Route: 048
     Dates: start: 201310
  5. ALPRAZOLAN [Concomitant]
     Indication: ANXIOLYTIC THERAPY
     Route: 048
     Dates: start: 2012
  6. PARATRAN (ACETAMINOPHEN/TRAMADOL) [Concomitant]
     Indication: PAIN

REACTIONS (12)
  - Foot deformity [Recovering/Resolving]
  - Acquired claw toe [Recovering/Resolving]
  - Gait disturbance [Recovering/Resolving]
  - Foot fracture [Recovered/Resolved]
  - Drug ineffective [Not Recovered/Not Resolved]
  - Pain [Not Recovered/Not Resolved]
  - Rheumatoid arthritis [Not Recovered/Not Resolved]
  - Osteoarthritis [Unknown]
  - Foot deformity [Unknown]
  - Extremity necrosis [Recovered/Resolved]
  - Foot deformity [Not Recovered/Not Resolved]
  - Muscle disorder [Unknown]
